FAERS Safety Report 17940694 (Version 1)
Quarter: 2020Q2

REPORT INFORMATION
  Report Type: Spontaneous
  Country: DE (occurrence: DE)
  Receive Date: 20200625
  Receipt Date: 20200625
  Transmission Date: 20200714
  Serious: Yes (Hospitalization, Other)
  Sender: FDA-Public Use
  Company Number: DE-SA-2020SA157783

PATIENT

DRUGS (32)
  1. DOCETAXEL. [Suspect]
     Active Substance: DOCETAXEL
     Dosage: 7-9TH CYCLE
     Dates: start: 20200123, end: 20200305
  2. NINTEDANIB [Suspect]
     Active Substance: NINTEDANIB
     Indication: NON-SMALL CELL LUNG CANCER METASTATIC
     Dosage: 100 MG, BID (100MG, TWO, TWICE DAILY ORAL FROM DAY 2 UNTIL DAY 21, EVERY 3 WEEKS; FIRST CYCLE )
     Route: 048
     Dates: start: 20190912, end: 20190912
  3. NINTEDANIB [Suspect]
     Active Substance: NINTEDANIB
     Dosage: 4-6TH CYCLE
     Dates: start: 20191119, end: 20200102
  4. PEMETREXED DISODIUM [Suspect]
     Active Substance: PEMETREXED DISODIUM
     Dosage: 500 MG/M2, Q3W (500 MILLIGRAM/SQ. METEREVERY 3 WEEKS ;2 CYCLES, SECOND-LINE THERAP; SIXTH CYCLE)
     Dates: start: 20190822, end: 20190822
  5. CARBOPLATIN. [Suspect]
     Active Substance: CARBOPLATIN
     Indication: NON-SMALL CELL LUNG CANCER METASTATIC
     Dosage: Q3W (FIRST-LINE THERAPY; AUC5, ON DAY1, EVERY 3 WEEKS; FOURTH CYCLE)
     Dates: start: 20190502, end: 20190502
  6. CARBOPLATIN. [Suspect]
     Active Substance: CARBOPLATIN
     Dosage: Q3W (FIRST-LINE THERAPY; AUC5, ON DAY1, EVERY 3 WEEKS; FOURTH CYCLE)
     Dates: start: 20190523, end: 20190523
  7. CARBOPLATIN. [Suspect]
     Active Substance: CARBOPLATIN
     Dosage: Q3W (FIRST-LINE THERAPY; AUC5, ON DAY1, EVERY 3 WEEKS; FOURTH CYCLE)
     Dates: start: 20190725, end: 20190725
  8. NINTEDANIB [Suspect]
     Active Substance: NINTEDANIB
     Dosage: 10-12TH CYCLE
     Dates: start: 20200326, end: 20200507
  9. PEMBROLIZUMAB. [Suspect]
     Active Substance: PEMBROLIZUMAB
     Indication: NON-SMALL CELL LUNG CANCER METASTATIC
     Dosage: 200 MG, Q3W (200 MILLIGRAM, EVERY 3 WEEKS; FIRST CYCLE)
     Dates: start: 20190502, end: 20190502
  10. PEMBROLIZUMAB. [Suspect]
     Active Substance: PEMBROLIZUMAB
     Dosage: 200 MG, Q3W (200 MILLIGRAM, EVERY 3 WEEKS; FOURTH CYCLE)
     Dates: start: 20190704, end: 20190704
  11. DOCETAXEL. [Suspect]
     Active Substance: DOCETAXEL
     Indication: NON-SMALL CELL LUNG CANCER METASTATIC
     Dosage: 75 MG/M2, Q3W (75MG/M2, D1, EVERY 3 WEEKS; FIRST CYCLE)
     Dates: start: 20190912, end: 20190912
  12. DOCETAXEL. [Suspect]
     Active Substance: DOCETAXEL
     Dosage: 75 MG/M2, Q3W (75MG/M2, D1, EVERY 3 WEEKS; THIRD CYCLE)
     Dates: start: 20191028, end: 20191028
  13. PEMBROLIZUMAB. [Suspect]
     Active Substance: PEMBROLIZUMAB
     Dosage: 200 MG, Q3W (200 MILLIGRAM, EVERY 3 WEEKS; THIRD CYCLE)
     Dates: start: 20190613, end: 20190613
  14. PEMBROLIZUMAB. [Suspect]
     Active Substance: PEMBROLIZUMAB
     Dosage: 200 MG, Q3W (200 MILLIGRAM, EVERY 3 WEEKS; SIXTH CYCLE)
     Dates: start: 20190822, end: 20190822
  15. PEMETREXED DISODIUM [Suspect]
     Active Substance: PEMETREXED DISODIUM
     Dosage: 500 MG/M2, Q3W (500 MILLIGRAM/SQ. METEREVERY 3 WEEKS ;2 CYCLES, SECOND-LINE THERAP; FOURTH CYCLE)
     Dates: start: 20190704, end: 20190704
  16. PEMBROLIZUMAB. [Suspect]
     Active Substance: PEMBROLIZUMAB
     Dosage: 200 MG, Q3W (200 MILLIGRAM, EVERY 3 WEEKS; SECOND CYCLE)
     Dates: start: 20190523, end: 20190523
  17. PEMBROLIZUMAB. [Suspect]
     Active Substance: PEMBROLIZUMAB
     Dosage: 200 MG, Q3W (200 MILLIGRAM, EVERY 3 WEEKS; FIFTH CYCLE)
     Dates: start: 20190725, end: 20190725
  18. DOCETAXEL. [Suspect]
     Active Substance: DOCETAXEL
     Dosage: 75 MG/M2, Q3W (75MG/M2, D1, EVERY 3 WEEKS; SECOND CYCLE)
     Dates: start: 20191007, end: 20191007
  19. PEMETREXED DISODIUM [Suspect]
     Active Substance: PEMETREXED DISODIUM
     Indication: NON-SMALL CELL LUNG CANCER METASTATIC
     Dosage: 500 MG/M2, Q3W (500 MILLIGRAM/SQ. METEREVERY 3 WEEKS ;2 CYCLES, SECOND-LINE THERAP; FIRST CYCLE)
     Dates: start: 20190502, end: 20190725
  20. CARBOPLATIN. [Suspect]
     Active Substance: CARBOPLATIN
     Dosage: Q3W (FIRST-LINE THERAPY; AUC5, ON DAY1, EVERY 3 WEEKS; FOURTH CYCLE)
     Dates: start: 20190822, end: 20190822
  21. NINTEDANIB [Suspect]
     Active Substance: NINTEDANIB
     Dosage: 13TH CYCLE
     Dates: start: 20200526, end: 20200526
  22. DOCETAXEL. [Suspect]
     Active Substance: DOCETAXEL
     Dosage: 4-6TH CYCLE
     Dates: start: 20191119, end: 20200102
  23. DOCETAXEL. [Suspect]
     Active Substance: DOCETAXEL
     Dosage: 13TH CYCLE
     Dates: start: 20200526, end: 20200526
  24. PEMETREXED DISODIUM [Suspect]
     Active Substance: PEMETREXED DISODIUM
     Dosage: 500 MG/M2, Q3W (500 MILLIGRAM/SQ. METEREVERY 3 WEEKS ;2 CYCLES, SECOND-LINE THERAP; FIFTH CYCLE)
     Dates: start: 20190725, end: 20190725
  25. NINTEDANIB [Suspect]
     Active Substance: NINTEDANIB
     Dosage: 7-9TH CYCLE
     Dates: start: 20200123, end: 20200305
  26. DOCETAXEL. [Suspect]
     Active Substance: DOCETAXEL
     Dosage: 10-12TH CYCLE
     Dates: start: 20200326, end: 20200507
  27. PEMETREXED DISODIUM [Suspect]
     Active Substance: PEMETREXED DISODIUM
     Dosage: 500 MG/M2, Q3W (500 MILLIGRAM/SQ. METEREVERY 3 WEEKS ;2 CYCLES, SECOND-LINE THERAP; SECOND CYCLE)
     Dates: start: 20190523, end: 20190523
  28. PEMETREXED DISODIUM [Suspect]
     Active Substance: PEMETREXED DISODIUM
     Dosage: 500 MG/M2, Q3W (500 MILLIGRAM/SQ. METEREVERY 3 WEEKS ;2 CYCLES, SECOND-LINE THERAP; THIRD CYCLE)
     Dates: start: 20190613, end: 20190613
  29. CARBOPLATIN. [Suspect]
     Active Substance: CARBOPLATIN
     Dosage: Q3W (FIRST-LINE THERAPY; AUC5, ON DAY1, EVERY 3 WEEKS; FOURTH CYCLE)
     Dates: start: 20190613, end: 20190613
  30. CARBOPLATIN. [Suspect]
     Active Substance: CARBOPLATIN
     Dosage: Q3W (FIRST-LINE THERAPY; AUC5, ON DAY1, EVERY 3 WEEKS; FOURTH CYCLE)
     Dates: start: 20190704, end: 20190704
  31. NINTEDANIB [Suspect]
     Active Substance: NINTEDANIB
     Dosage: 100 MG, BID (100MG, TWO, TWICE DAILY ORAL FROM DAY 2 UNTIL DAY 21, EVERY 3 WEEKS; SECOND CYCLE )
     Route: 048
     Dates: start: 20191007, end: 20191007
  32. NINTEDANIB [Suspect]
     Active Substance: NINTEDANIB
     Dosage: 100 MG, BID (100MG, TWO, TWICE DAILY ORAL FROM DAY 2 UNTIL DAY 21, EVERY 3 WEEKS; THIRD CYCLE )
     Route: 048
     Dates: start: 20191028, end: 20191028

REACTIONS (8)
  - Venous thrombosis [Recovering/Resolving]
  - Neuropathy peripheral [Unknown]
  - Inappropriate schedule of product administration [Unknown]
  - Malignant neoplasm progression [Unknown]
  - Diarrhoea [Unknown]
  - Nausea [Unknown]
  - Febrile neutropenia [Unknown]
  - Pneumonitis [Unknown]

NARRATIVE: CASE EVENT DATE: 20190627
